FAERS Safety Report 4979443-3 (Version None)
Quarter: 2006Q2

REPORT INFORMATION
  Report Type: 
  Country: None (occurrence: None)
  Receive Date: 20060421
  Receipt Date: 20050929
  Transmission Date: 20061013
  Serious: Yes (Hospitalization)
  Sender: FDA-Public Use
  Company Number: US-BRISTOL-MYERS SQUIBB COMPANY-13126750

PATIENT
  Age: 52 Year
  Sex: Female
  Weight: 134 kg

DRUGS (29)
  1. ABILIFY [Suspect]
     Indication: SCHIZOAFFECTIVE DISORDER
     Route: 048
     Dates: start: 20030612, end: 20050609
  2. ABILIFY [Suspect]
     Indication: DEPRESSION
     Route: 048
     Dates: start: 20030612, end: 20050609
  3. ZYPREXA [Concomitant]
     Indication: SCHIZOAFFECTIVE DISORDER
     Dates: start: 19970201, end: 20031101
  4. ZYPREXA [Concomitant]
     Indication: DEPRESSION
     Dates: start: 19970201, end: 20031101
  5. ALPRAZOLAM [Concomitant]
  6. FLUOXETINE [Concomitant]
  7. WELLBUTRIN [Concomitant]
  8. RANITIDINE [Concomitant]
  9. METFORMIN HYDROCHLORIDE [Concomitant]
  10. TRIAMTERENE AND HYDROCHLOROTHIAZIDE [Concomitant]
  11. ALTACE [Concomitant]
  12. ACTOS [Concomitant]
  13. ZOCOR [Concomitant]
  14. LIPITOR [Concomitant]
  15. ZETIA [Concomitant]
  16. PACERONE [Concomitant]
  17. PROZAC [Concomitant]
  18. XANAX [Concomitant]
  19. PRILOSEC [Concomitant]
  20. ZANTAC [Concomitant]
  21. NPH INSULIN [Concomitant]
  22. REGULAR INSULIN [Concomitant]
  23. ALBUTEROL [Concomitant]
  24. CARTIA XT [Concomitant]
  25. AMIODARONE HCL [Concomitant]
  26. COUMADIN [Concomitant]
  27. CALCIUM SUPPLEMENT [Concomitant]
  28. MULTI-VITAMIN [Concomitant]
  29. VITAMIN B COMPLEX CAP [Concomitant]

REACTIONS (10)
  - AORTIC VALVE STENOSIS [None]
  - ATRIAL FIBRILLATION [None]
  - ATRIOVENTRICULAR BLOCK [None]
  - CARDIAC FAILURE CONGESTIVE [None]
  - DYSKINESIA [None]
  - FALL [None]
  - HERPES ZOSTER [None]
  - PULMONARY FIBROSIS [None]
  - THYROID NEOPLASM [None]
  - TREMOR [None]
